FAERS Safety Report 9565802 (Version 1)
Quarter: 2013Q3

REPORT INFORMATION
  Report Type: Spontaneous
  Country: TH (occurrence: TH)
  Receive Date: 20130930
  Receipt Date: 20130930
  Transmission Date: 20140515
  Serious: Yes (Hospitalization)
  Sender: FDA-Public Use
  Company Number: TH-GLAXOSMITHKLINE-B0925995A

PATIENT
  Age: 70 Year
  Sex: Male

DRUGS (2)
  1. AVODART [Suspect]
     Indication: BENIGN PROSTATIC HYPERPLASIA
     Dosage: .5MG PER DAY
     Route: 065
     Dates: start: 2012, end: 201309
  2. ALPHA BLOCKER [Concomitant]
     Route: 048

REACTIONS (1)
  - Hyponatraemia [Recovered/Resolved]
